FAERS Safety Report 11802169 (Version 1)
Quarter: 2015Q4

REPORT INFORMATION
  Report Type: Spontaneous
  Country: NL (occurrence: NL)
  Receive Date: 20151204
  Receipt Date: 20151204
  Transmission Date: 20160305
  Serious: Yes (Other)
  Sender: FDA-Public Use
  Company Number: NL-TEVA-613393ISR

PATIENT
  Age: 62 Year
  Sex: Female
  Weight: 56 kg

DRUGS (1)
  1. HYDROCHLOORTHIAZIDE TABLET 12,5MG [Suspect]
     Active Substance: HYDROCHLOROTHIAZIDE
     Indication: HYPERTENSION
     Dosage: ONCE DAILY ONE PIECE
     Route: 048
     Dates: start: 20150110, end: 20150922

REACTIONS (6)
  - Lacrimation increased [Unknown]
  - Condition aggravated [Unknown]
  - Cough [Unknown]
  - Hypersensitivity [Unknown]
  - Pharyngeal oedema [Unknown]
  - Sneezing [Unknown]

NARRATIVE: CASE EVENT DATE: 20150110
